FAERS Safety Report 15847025 (Version 1)
Quarter: 2019Q1

REPORT INFORMATION
  Report Type: Spontaneous
  Country: KR (occurrence: KR)
  Receive Date: 20190121
  Receipt Date: 20190121
  Transmission Date: 20190417
  Serious: Yes (Other)
  Sender: FDA-Public Use
  Company Number: KR-EDENBRIDGE PHARMACEUTICALS, LLC-KR-2019EDE000002

PATIENT

DRUGS (8)
  1. VIGABATRIN. [Suspect]
     Active Substance: VIGABATRIN
     Indication: INFANTILE SPASMS
     Dosage: 50 MG/KG, QD
  2. CIMETIDINE [Concomitant]
     Active Substance: CIMETIDINE
     Indication: PRODUCT USED FOR UNKNOWN INDICATION
     Dosage: UNK
  3. PREDNISOLONE SODIUM PHOSPHATE. [Suspect]
     Active Substance: PREDNISOLONE SODIUM PHOSPHATE
     Dosage: 60 MG, QD
  4. PREDNISOLONE SODIUM PHOSPHATE. [Suspect]
     Active Substance: PREDNISOLONE SODIUM PHOSPHATE
     Dosage: UNK, TAPERED
  5. PREDNISOLONE SODIUM PHOSPHATE. [Suspect]
     Active Substance: PREDNISOLONE SODIUM PHOSPHATE
     Indication: INFANTILE SPASMS
     Dosage: 40 MG, QD
  6. VIGABATRIN. [Suspect]
     Active Substance: VIGABATRIN
     Dosage: 100 MG/KG, QD
  7. VIGABATRIN. [Suspect]
     Active Substance: VIGABATRIN
     Dosage: UNK, TAPERED
  8. VIGABATRIN. [Suspect]
     Active Substance: VIGABATRIN
     Dosage: 150 MG/KG, QD

REACTIONS (1)
  - Pneumonia [Unknown]
